FAERS Safety Report 8429902-6 (Version None)
Quarter: 2012Q2

REPORT INFORMATION
  Report Type: 
  Country: None (occurrence: None)
  Receive Date: 20120612
  Receipt Date: 20120531
  Transmission Date: 20120825
  Serious: Yes (Other)
  Sender: FDA-Public Use
  Company Number: GB-FRI-1000031177

PATIENT
  Age: 84 Year
  Sex: Female

DRUGS (5)
  1. ISOSORBIDE MONONITRATE [Concomitant]
     Dosage: 20 MG
     Route: 048
  2. MEMANTINE HCL [Suspect]
     Indication: DEMENTIA ALZHEIMER'S TYPE
     Dosage: 10 MG
     Route: 048
     Dates: start: 20120131, end: 20120403
  3. ASPIRIN [Concomitant]
     Dosage: 75 MG
     Route: 048
  4. NEBIVOLOL [Concomitant]
     Dosage: 2.5 MG
     Route: 048
  5. SOLIFENACIN SUCCINATE [Concomitant]
     Dosage: 5 MG
     Route: 048

REACTIONS (8)
  - OEDEMA PERIPHERAL [None]
  - SOMNOLENCE [None]
  - DISORIENTATION [None]
  - GENERAL PHYSICAL HEALTH DETERIORATION [None]
  - BLOOD SODIUM DECREASED [None]
  - CONFUSIONAL STATE [None]
  - FATIGUE [None]
  - BLOOD ALBUMIN DECREASED [None]
